FAERS Safety Report 17806570 (Version 1)
Quarter: 2020Q2

REPORT INFORMATION
  Report Type: Spontaneous
  Country: US (occurrence: US)
  Receive Date: 20200519
  Receipt Date: 20200519
  Transmission Date: 20200714
  Serious: Yes (Other)
  Sender: FDA-Public Use
  Company Number: None

PATIENT
  Age: 20 Year
  Sex: Female

DRUGS (3)
  1. LORAZEPAM 1MG BY MOUTH TWICE DAILY [Concomitant]
     Dates: start: 20200205
  2. ARIPIPRAZOLE. [Suspect]
     Active Substance: ARIPIPRAZOLE
     Indication: PSYCHOTIC DISORDER
     Route: 048
     Dates: start: 20200121
  3. LORAZEPAM 0.5MG BY MOUTH AT BEDTIME [Concomitant]
     Dates: start: 20200123, end: 20200205

REACTIONS (5)
  - Oculogyric crisis [None]
  - Eye movement disorder [None]
  - Drooling [None]
  - Dysarthria [None]
  - Dystonia [None]

NARRATIVE: CASE EVENT DATE: 20200207
